FAERS Safety Report 24043170 (Version 2)
Quarter: 2024Q3

REPORT INFORMATION
  Report Type: Spontaneous
  Country: US (occurrence: US)
  Receive Date: 20240702
  Receipt Date: 20240831
  Transmission Date: 20241017
  Serious: Yes (Other)
  Sender: IOVANCE BIOTHERAPEUTICS
  Company Number: US-IOVANCE BIOTHERAPEUTICS, INC-2024IOV000036

PATIENT

DRUGS (12)
  1. AMTAGVI [Suspect]
     Active Substance: LIFILEUCEL
     Indication: Metastatic malignant melanoma
     Dosage: UNK
     Route: 042
     Dates: start: 20240613, end: 20240613
  2. ALDESLEUKIN [Concomitant]
     Active Substance: ALDESLEUKIN
     Dosage: UNK
     Dates: end: 20240616
  3. ACETAMINOPHEN [Concomitant]
     Active Substance: ACETAMINOPHEN
     Dosage: 1000 MG/100 ML, 1 DOSE
     Route: 042
     Dates: start: 20240614
  4. ACETAMINOPHEN [Concomitant]
     Active Substance: ACETAMINOPHEN
     Dosage: 650 MILLIGRAM, Q 4HRS FOR 21 DOSES
     Route: 048
     Dates: start: 20240614
  5. ACYCLOVIR [Concomitant]
     Active Substance: ACYCLOVIR
     Dosage: 400 MG, BID
     Route: 048
     Dates: start: 20240614
  6. ALBUMIN HUMAN [Concomitant]
     Active Substance: ALBUMIN HUMAN
     Dosage: 25G/100ML
     Route: 042
     Dates: start: 20240618
  7. BUPRENORPHINE [Concomitant]
     Active Substance: BUPRENORPHINE
     Dosage: 5 MICROGRAM, HOURLY
     Route: 062
     Dates: start: 20240615
  8. CEFEPIME [Concomitant]
     Active Substance: CEFEPIME HYDROCHLORIDE
     Dosage: 2G/100ML Q 8HRS
     Route: 042
     Dates: start: 20240614, end: 20240619
  9. FAMOTIDINE [Concomitant]
     Active Substance: FAMOTIDINE
     Dosage: 20 MG Q 12HRS
     Route: 048
     Dates: start: 20240614, end: 20240619
  10. FILGRASTIM [Concomitant]
     Active Substance: FILGRASTIM
     Dosage: 480 MCG DAILY UNTIL ANC 1000X3 CONSECUTIVE DAYS OR 1500 1 DAY
     Route: 058
     Dates: start: 20240614, end: 20240619
  11. FLUCONAZOLE [Concomitant]
     Active Substance: FLUCONAZOLE
     Dosage: 400 MG QD
     Route: 048
     Dates: start: 20240614, end: 20240619
  12. FUROSEMIDE [Concomitant]
     Active Substance: FUROSEMIDE
     Dosage: 40MG/4ML PUSH STAT
     Route: 042
     Dates: start: 20240614, end: 20240619

REACTIONS (1)
  - Cytokine release syndrome [Unknown]

NARRATIVE: CASE EVENT DATE: 20240601
